FAERS Safety Report 10195812 (Version 1)
Quarter: 2014Q2

REPORT INFORMATION
  Report Type: Spontaneous
  Country: GB (occurrence: None)
  Receive Date: 20140520
  Receipt Date: 20140520
  Transmission Date: 20141212
  Serious: Yes (Congenital Anomaly)
  Sender: FDA-Public Use
  Company Number: B0979771A

PATIENT
  Sex: 0

DRUGS (1)
  1. ZANAMIVIR [Suspect]
     Indication: H1N1 INFLUENZA
     Dosage: UNK/ TRANSPLACENTARY
     Route: 064

REACTIONS (2)
  - Maternal drugs affecting foetus [None]
  - Congenital umbilical hernia [None]
